FAERS Safety Report 10930966 (Version 1)
Quarter: 2015Q1

REPORT INFORMATION
  Report Type: Spontaneous
  Country: US (occurrence: None)
  Receive Date: 20150318
  Receipt Date: 20150318
  Transmission Date: 20150721
  Serious: Yes (Death, Hospitalization)
  Sender: FDA-Public Use
  Company Number: None

PATIENT
  Age: 65 Year
  Sex: Male

DRUGS (1)
  1. NEXAVAR [Suspect]
     Active Substance: SORAFENIB
     Indication: HEPATIC CANCER
     Dosage: 2 TABLET
     Route: 048
     Dates: start: 20150130, end: 201502

REACTIONS (4)
  - Hospice care [None]
  - Dysphagia [None]
  - Ascites [None]
  - Feeding disorder [None]

NARRATIVE: CASE EVENT DATE: 20150314
